FAERS Safety Report 8339840-5 (Version None)
Quarter: 2012Q2

REPORT INFORMATION
  Report Type: 
  Country: None (occurrence: None)
  Receive Date: 20120507
  Receipt Date: 20120502
  Transmission Date: 20120825
  Serious: Yes (Other)
  Sender: FDA-Public Use
  Company Number: US-PFIZER INC-2012108030

PATIENT
  Sex: Female
  Weight: 113.38 kg

DRUGS (3)
  1. LYRICA [Suspect]
     Indication: FIBROMYALGIA
     Dosage: UNK
     Dates: start: 20110601, end: 20110701
  2. NAPROSYN [Concomitant]
     Indication: PAIN
     Dosage: UNK, AS NEEDED
  3. CYMBALTA [Suspect]
     Indication: FIBROMYALGIA
     Dosage: UNK

REACTIONS (4)
  - FIBROMYALGIA [None]
  - GRAND MAL CONVULSION [None]
  - BRAIN INJURY [None]
  - MEMORY IMPAIRMENT [None]
